FAERS Safety Report 23428485 (Version 1)
Quarter: 2024Q1

REPORT INFORMATION
  Report Type: Spontaneous
  Country: GB (occurrence: GB)
  Receive Date: 20240122
  Receipt Date: 20240122
  Transmission Date: 20240410
  Serious: Yes (Death, Life-Threatening, Other)
  Sender: FDA-Public Use
  Company Number: None

PATIENT

DRUGS (4)
  1. PREDNISOLONE [Suspect]
     Active Substance: PREDNISOLONE
     Dosage: UNK (PREDNISOLONE 5MG TABLETS)
  2. TACROLIMUS [Suspect]
     Active Substance: TACROLIMUS
     Dosage: UNK (ADVAGRAF 1MG MODIFIED-RELEASE CAPSULES)
  3. CINACALCET [Suspect]
     Active Substance: CINACALCET
     Dosage: 30 MG
  4. MYFENAX [Suspect]
     Active Substance: MYCOPHENOLATE MOFETIL
     Dosage: UNK (MYFENAX 250MG CAPSULE)

REACTIONS (1)
  - Death [Fatal]
